FAERS Safety Report 9351220 (Version 2)
Quarter: 2013Q3

REPORT INFORMATION
  Report Type: Spontaneous
  Country: DE (occurrence: DE)
  Receive Date: 20130617
  Receipt Date: 20130709
  Transmission Date: 20140515
  Serious: Yes (Other)
  Sender: FDA-Public Use
  Company Number: DE-PFIZER INC-2013177597

PATIENT
  Age: 82 Year
  Sex: Male

DRUGS (2)
  1. LYRICA [Suspect]
     Dosage: 300-0-300 MG DAILY
     Dates: start: 20130601
  2. MARCUMAR [Concomitant]
     Dosage: UNK

REACTIONS (3)
  - Prothrombin time prolonged [Not Recovered/Not Resolved]
  - Neuralgia [Not Recovered/Not Resolved]
  - Restless legs syndrome [Not Recovered/Not Resolved]
